FAERS Safety Report 23151762 (Version 2)
Quarter: 2023Q4

REPORT INFORMATION
  Report Type: Report from Study
  Country: US (occurrence: US)
  Receive Date: 20231107
  Receipt Date: 20231227
  Transmission Date: 20240110
  Serious: Yes (Hospitalization, Other)
  Sender: FDA-Public Use
  Company Number: US-ABBVIE-5479011

PATIENT
  Sex: Male

DRUGS (3)
  1. VENCLEXTA [Suspect]
     Active Substance: VENETOCLAX
     Indication: Acute myeloid leukaemia
     Dosage: LAST ADMIN DATE 2023
     Route: 048
     Dates: start: 20230606
  2. VENCLEXTA [Suspect]
     Active Substance: VENETOCLAX
     Indication: Acute myeloid leukaemia
     Dosage: FOR 1 WEEK THEN 3WEEKS OFF DISCONTINUED 2023
     Route: 048
     Dates: start: 20231009
  3. VENCLEXTA [Suspect]
     Active Substance: VENETOCLAX
     Indication: Acute myeloid leukaemia
     Route: 048
     Dates: start: 2023

REACTIONS (9)
  - Hospitalisation [Recovered/Resolved]
  - Pyrexia [Not Recovered/Not Resolved]
  - Thrombosis [Recovering/Resolving]
  - Mood altered [Not Recovered/Not Resolved]
  - Pulmonary thrombosis [Recovering/Resolving]
  - Dehydration [Not Recovered/Not Resolved]
  - Irritability [Not Recovered/Not Resolved]
  - Stomatitis [Not Recovered/Not Resolved]
  - Mental status changes [Not Recovered/Not Resolved]

NARRATIVE: CASE EVENT DATE: 20230101
